FAERS Safety Report 16664111 (Version 2)
Quarter: 2020Q4

REPORT INFORMATION
  Report Type: Spontaneous
  Country: CL (occurrence: CL)
  Receive Date: 20190802
  Receipt Date: 20201222
  Transmission Date: 20210113
  Serious: Yes (Hospitalization)
  Sender: FDA-Public Use
  Company Number: CL-MYLANLABS-2019M1071976

PATIENT
  Age: 41 Year
  Sex: Female

DRUGS (14)
  1. LEPONEX [Suspect]
     Active Substance: CLOZAPINE
     Indication: BIPOLAR DISORDER
     Dosage: 100 MILLIGRAM, QD
     Route: 048
     Dates: start: 2000
  2. LEPONEX [Suspect]
     Active Substance: CLOZAPINE
     Dosage: 100 GRAM
     Route: 048
  3. DORMONID                           /00634101/ [Concomitant]
     Indication: SLEEP DISORDER
     Dosage: 15 MILLIGRAM, QD
     Route: 048
     Dates: start: 2000
  4. HIPOGLUCIN [Concomitant]
     Active Substance: METFORMIN HYDROCHLORIDE
     Indication: INSULIN RESISTANCE
     Dosage: 500 MILLIGRAM, QD
     Route: 048
     Dates: start: 2018
  5. EUTROXSIG [Concomitant]
     Active Substance: LEVOTHYROXINE SODIUM
     Indication: HYPOTHYROIDISM
     Dosage: 25 MICROGRAM, QD
     Route: 048
     Dates: start: 2000
  6. PARACETAMOL [Concomitant]
     Active Substance: ACETAMINOPHEN
     Dosage: UNK UNK, QD
     Route: 048
  7. LEPONEX [Suspect]
     Active Substance: CLOZAPINE
     Dosage: 25 MILLIGRAM, QD
     Route: 048
     Dates: start: 20010612
  8. NOPTIC [Concomitant]
     Dosage: 3 MILLIGRAM, QD
     Route: 048
     Dates: start: 2000
  9. PREGABALIN. [Concomitant]
     Active Substance: PREGABALIN
     Indication: FIBROMYALGIA
     Dosage: 2 MONTHS AGO
     Route: 048
  10. ASPIRINA [Concomitant]
     Active Substance: ASPIRIN
     Indication: PERIPHERAL ARTERIAL OCCLUSIVE DISEASE
  11. TRAMADOL. [Concomitant]
     Active Substance: TRAMADOL
     Indication: PAIN
     Dosage: 100 MILLIGRAM, QD
     Route: 048
  12. ASPIRINA [Concomitant]
     Active Substance: ASPIRIN
     Indication: CARDIOVASCULAR DISORDER
     Dosage: 100 MILLIGRAM, QD
     Route: 048
     Dates: start: 2014
  13. TOPAMAX [Concomitant]
     Active Substance: TOPIRAMATE
     Indication: BIPOLAR DISORDER
     Dosage: 125 MILLIGRAM, QD
     Route: 048
     Dates: start: 2000
  14. TOPAMAX [Concomitant]
     Active Substance: TOPIRAMATE
     Dosage: 100 MILLIGRAM, QD
     Route: 048

REACTIONS (9)
  - Insulin resistance [Not Recovered/Not Resolved]
  - Inflammation [Unknown]
  - Rotator cuff syndrome [Not Recovered/Not Resolved]
  - Weight increased [Recovering/Resolving]
  - Fibromyalgia [Not Recovered/Not Resolved]
  - Periarthritis [Not Recovered/Not Resolved]
  - Product use in unapproved indication [Not Recovered/Not Resolved]
  - Peripheral arterial occlusive disease [Not Recovered/Not Resolved]
  - Pain [Unknown]

NARRATIVE: CASE EVENT DATE: 20010612
